FAERS Safety Report 15445251 (Version 1)
Quarter: 2018Q4

REPORT INFORMATION
  Report Type: Spontaneous
  Country: AU (occurrence: AU)
  Receive Date: 20180928
  Receipt Date: 20180928
  Transmission Date: 20190204
  Serious: Yes (Life-Threatening)
  Sender: FDA-Public Use
  Company Number: AU-ALLERGAN-1846789US

PATIENT
  Age: 86 Year
  Sex: Male

DRUGS (3)
  1. CEFALOTHIN [Suspect]
     Active Substance: CEPHALOTHIN SODIUM
     Indication: NEUROPATHIC ULCER
     Dosage: UNK, UNKNOWN
     Route: 061
  2. CIPROFLOXACIN HCL UNK [Suspect]
     Active Substance: CIPROFLOXACIN
     Indication: NEUROPATHIC ULCER
     Dosage: UNK UNK, UNKNOWN
     Route: 048
  3. OCUFLOX [Suspect]
     Active Substance: OFLOXACIN
     Indication: NEUROPATHIC ULCER
     Dosage: UNK UNK, UNKNOWN
     Route: 061

REACTIONS (4)
  - Eye disorder [Unknown]
  - Keratitis fungal [Unknown]
  - Vitreous disorder [Unknown]
  - Drug ineffective [Unknown]
